FAERS Safety Report 20249332 (Version 4)
Quarter: 2022Q1

REPORT INFORMATION
  Report Type: Report from Study
  Country: US (occurrence: US)
  Receive Date: 20211229
  Receipt Date: 20220228
  Transmission Date: 20220423
  Serious: Yes (Death, Hospitalization)
  Sender: FDA-Public Use
  Company Number: US-Taiho Oncology Inc-EU-2021-04002

PATIENT
  Age: 54 Year
  Sex: Female
  Weight: 72.8 kg

DRUGS (2)
  1. TIPIRACIL HYDROCHLORIDE\TRIFLURIDINE [Suspect]
     Active Substance: TIPIRACIL HYDROCHLORIDE\TRIFLURIDINE
     Indication: Oesophageal adenocarcinoma
     Dosage: DOSE, FREQUENCY AND CYCLE UNKNOWN
     Route: 048
     Dates: start: 20211208, end: 20220103
  2. RAMUCIRUMAB [Suspect]
     Active Substance: RAMUCIRUMAB
     Indication: Oesophageal adenocarcinoma
     Dosage: DOSE AND CURRENT CYCLE UNKNOWN
     Route: 042
     Dates: start: 20211208, end: 20211208

REACTIONS (9)
  - Shock haemorrhagic [Fatal]
  - Upper gastrointestinal haemorrhage [Fatal]
  - Hypokalaemia [Fatal]
  - Decreased appetite [Fatal]
  - Fatigue [Fatal]
  - Orthostatic hypotension [Recovered/Resolved]
  - Dehydration [Recovered/Resolved]
  - Oesophageal stenosis [Unknown]
  - Dysphagia [Unknown]

NARRATIVE: CASE EVENT DATE: 20211218
